FAERS Safety Report 8594154-3 (Version None)
Quarter: 2012Q3

REPORT INFORMATION
  Report Type: 
  Country: None (occurrence: None)
  Receive Date: 20120814
  Receipt Date: 20110211
  Transmission Date: 20120928
  Serious: Yes (Other)
  Sender: FDA-Public Use
  Company Number: PT-ROCHE-1093099

PATIENT
  Age: 35 Year
  Sex: Male

DRUGS (4)
  1. PEGASYS [Suspect]
     Indication: HEPATITIS B
  2. LAMIVUDINE [Concomitant]
  3. ROFERON-A [Suspect]
     Indication: HEPATITIS B
  4. ADEFOVIR [Concomitant]

REACTIONS (6)
  - HEPATIC STEATOSIS [None]
  - ASTHMA [None]
  - WEIGHT INCREASED [None]
  - BILIARY COLIC [None]
  - CHOLELITHIASIS [None]
  - NO THERAPEUTIC RESPONSE [None]
